FAERS Safety Report 24169487 (Version 1)
Quarter: 2024Q3

REPORT INFORMATION
  Report Type: Spontaneous
  Country: KR (occurrence: KR)
  Receive Date: 20240802
  Receipt Date: 20240802
  Transmission Date: 20241017
  Serious: Yes (Other)
  Sender: BRISTOL MYERS SQUIBB
  Company Number: KR-BRISTOL-MYERS SQUIBB COMPANY-2024-117361

PATIENT
  Age: 66 Year
  Sex: Male
  Weight: 72 kg

DRUGS (78)
  1. BARACLUDE [Suspect]
     Active Substance: ENTECAVIR
     Indication: Product used for unknown indication
     Dates: start: 20180313
  2. RITUXIMAB [Suspect]
     Active Substance: RITUXIMAB
     Indication: Product used for unknown indication
     Dates: start: 20180314
  3. RITUXIMAB [Suspect]
     Active Substance: RITUXIMAB
     Dates: start: 20180417
  4. RITUXIMAB [Suspect]
     Active Substance: RITUXIMAB
     Dates: start: 20180509
  5. RITUXIMAB [Suspect]
     Active Substance: RITUXIMAB
     Dates: start: 20180605
  6. RITUXIMAB [Suspect]
     Active Substance: RITUXIMAB
     Dates: start: 20180702
  7. RITUXIMAB [Suspect]
     Active Substance: RITUXIMAB
     Dates: start: 20180726
  8. MAGNESIUM HYDROXIDE [Concomitant]
     Active Substance: MAGNESIUM HYDROXIDE
     Indication: Product used for unknown indication
     Dates: start: 20180210
  9. TAMSULOSIN HYDROCHLORIDE [Concomitant]
     Active Substance: TAMSULOSIN HYDROCHLORIDE
     Indication: Product used for unknown indication
     Dates: start: 20180409
  10. IBUPROFEN [Concomitant]
     Active Substance: IBUPROFEN
     Indication: Product used for unknown indication
     Dates: start: 20180423, end: 20180509
  11. ACETAMINOPHEN [Concomitant]
     Active Substance: ACETAMINOPHEN
     Indication: Product used for unknown indication
     Dates: start: 20180423, end: 20180509
  12. SUCRALFATE [Concomitant]
     Active Substance: SUCRALFATE
     Indication: Product used for unknown indication
     Dates: start: 20180424, end: 20180509
  13. SUCRALFATE [Concomitant]
     Active Substance: SUCRALFATE
     Dates: start: 20180316, end: 20180426
  14. CEFEPIME HYDROCHLORIDE [Concomitant]
     Active Substance: CEFEPIME HYDROCHLORIDE
     Indication: Product used for unknown indication
     Dates: start: 20180516, end: 20180520
  15. CEFEPIME HYDROCHLORIDE [Concomitant]
     Active Substance: CEFEPIME HYDROCHLORIDE
     Dates: start: 20180321, end: 20180327
  16. FAMOTIDINE [Concomitant]
     Active Substance: FAMOTIDINE
     Indication: Product used for unknown indication
     Dates: start: 20180518, end: 20180520
  17. FAMOTIDINE [Concomitant]
     Active Substance: FAMOTIDINE
     Dates: start: 20180226, end: 20180331
  18. LANSOPRAZOLE [Concomitant]
     Active Substance: LANSOPRAZOLE
     Indication: Product used for unknown indication
     Dates: start: 20180514
  19. LANSOPRAZOLE [Concomitant]
     Active Substance: LANSOPRAZOLE
     Dates: start: 20180417, end: 20180513
  20. MIRABEGRON [Concomitant]
     Active Substance: MIRABEGRON
     Indication: Product used for unknown indication
     Dates: start: 20180511
  21. ALMAGATE [Concomitant]
     Active Substance: ALMAGATE
     Indication: Product used for unknown indication
     Dates: start: 20180513, end: 20180603
  22. ESCITALOPRAM OXALATE [Concomitant]
     Active Substance: ESCITALOPRAM OXALATE
     Indication: Product used for unknown indication
     Dates: start: 20180518, end: 20180703
  23. ESCITALOPRAM OXALATE [Concomitant]
     Active Substance: ESCITALOPRAM OXALATE
     Dates: start: 20180704
  24. DULOXETINE HYDROCHLORIDE [Concomitant]
     Active Substance: DULOXETINE HYDROCHLORIDE
     Indication: Product used for unknown indication
     Dates: start: 20180514
  25. BENZYDAMINE HYDROCHLORIDE [Concomitant]
     Active Substance: BENZYDAMINE HYDROCHLORIDE
     Indication: Product used for unknown indication
     Dates: start: 20180331
  26. FLUCONAZOLE [Concomitant]
     Active Substance: FLUCONAZOLE
     Indication: Product used for unknown indication
     Dates: start: 20180702, end: 20180809
  27. FLUCONAZOLE [Concomitant]
     Active Substance: FLUCONAZOLE
     Dates: start: 20180509, end: 20180523
  28. FLUCONAZOLE [Concomitant]
     Active Substance: FLUCONAZOLE
     Dates: start: 20180306, end: 20180409
  29. FLUCONAZOLE [Concomitant]
     Active Substance: FLUCONAZOLE
     Dates: start: 20180605, end: 20180623
  30. FLUCONAZOLE [Concomitant]
     Active Substance: FLUCONAZOLE
     Dates: start: 20180417, end: 20180428
  31. MISOPROSTOL [Concomitant]
     Active Substance: MISOPROSTOL
     Indication: Product used for unknown indication
     Dates: start: 20180605, end: 20180609
  32. MISOPROSTOL [Concomitant]
     Active Substance: MISOPROSTOL
     Dates: start: 20180504, end: 20180508
  33. MISOPROSTOL [Concomitant]
     Active Substance: MISOPROSTOL
     Dates: start: 20180726, end: 20180730
  34. MISOPROSTOL [Concomitant]
     Active Substance: MISOPROSTOL
     Dates: start: 20180702, end: 20180706
  35. DOCUSATE SODIUM [Concomitant]
     Active Substance: DOCUSATE SODIUM
     Indication: Product used for unknown indication
     Dates: start: 20180710, end: 20180710
  36. BISACODYL [Concomitant]
     Active Substance: BISACODYL
     Indication: Product used for unknown indication
     Dates: start: 20180710, end: 20180710
  37. BISOPROLOL FUMARATE [Concomitant]
     Active Substance: BISOPROLOL FUMARATE
     Indication: Product used for unknown indication
     Dates: start: 20180716
  38. SODIUM BICARBONATE [Concomitant]
     Active Substance: SODIUM BICARBONATE
     Indication: Product used for unknown indication
     Dates: start: 20180725
  39. SODIUM BICARBONATE [Concomitant]
     Active Substance: SODIUM BICARBONATE
     Dates: start: 20180314, end: 20180411
  40. CYCLOPHOSPHAMIDE [Concomitant]
     Active Substance: CYCLOPHOSPHAMIDE
     Indication: Product used for unknown indication
     Dates: start: 20180417, end: 20180421
  41. CYCLOPHOSPHAMIDE [Concomitant]
     Active Substance: CYCLOPHOSPHAMIDE
     Dates: start: 20180509, end: 20180513
  42. CYCLOPHOSPHAMIDE [Concomitant]
     Active Substance: CYCLOPHOSPHAMIDE
     Dates: start: 20180605, end: 20180609
  43. CYCLOPHOSPHAMIDE [Concomitant]
     Active Substance: CYCLOPHOSPHAMIDE
     Dates: start: 20180702, end: 20180706
  44. CYCLOPHOSPHAMIDE [Concomitant]
     Active Substance: CYCLOPHOSPHAMIDE
     Dates: start: 20180726, end: 20180730
  45. CYCLOPHOSPHAMIDE [Concomitant]
     Active Substance: CYCLOPHOSPHAMIDE
     Dates: start: 20180314, end: 20180318
  46. PREDNISOLONE [Concomitant]
     Active Substance: PREDNISOLONE
     Indication: Product used for unknown indication
     Dates: start: 20180417, end: 20180421
  47. PREDNISOLONE [Concomitant]
     Active Substance: PREDNISOLONE
     Dates: start: 20180509, end: 20180513
  48. PREDNISOLONE [Concomitant]
     Active Substance: PREDNISOLONE
     Dates: start: 20180605, end: 20180609
  49. PREDNISOLONE [Concomitant]
     Active Substance: PREDNISOLONE
     Dates: start: 20180702, end: 20180706
  50. PREDNISOLONE [Concomitant]
     Active Substance: PREDNISOLONE
     Dates: start: 20180726, end: 20180730
  51. PREDNISOLONE [Concomitant]
     Active Substance: PREDNISOLONE
     Dates: start: 20180314, end: 20180318
  52. DOXORUBICIN HYDROCHLORIDE [Concomitant]
     Active Substance: DOXORUBICIN HYDROCHLORIDE
     Indication: Product used for unknown indication
     Dates: start: 20180417, end: 20180421
  53. DOXORUBICIN HYDROCHLORIDE [Concomitant]
     Active Substance: DOXORUBICIN HYDROCHLORIDE
     Dates: start: 20180605, end: 20180609
  54. DOXORUBICIN HYDROCHLORIDE [Concomitant]
     Active Substance: DOXORUBICIN HYDROCHLORIDE
     Dates: start: 20180509, end: 20180513
  55. DOXORUBICIN HYDROCHLORIDE [Concomitant]
     Active Substance: DOXORUBICIN HYDROCHLORIDE
     Dates: start: 20180702, end: 20180706
  56. DOXORUBICIN HYDROCHLORIDE [Concomitant]
     Active Substance: DOXORUBICIN HYDROCHLORIDE
     Dates: start: 20180726, end: 20180730
  57. DOXORUBICIN HYDROCHLORIDE [Concomitant]
     Active Substance: DOXORUBICIN HYDROCHLORIDE
     Dates: start: 20180314, end: 20180318
  58. OXYCODONE HYDROCHLORIDE [Concomitant]
     Active Substance: OXYCODONE HYDROCHLORIDE
     Indication: Product used for unknown indication
     Dates: start: 20180204
  59. FLUBENDAZOLE [Concomitant]
     Active Substance: FLUBENDAZOLE
     Indication: Product used for unknown indication
     Dates: start: 20180203, end: 20180417
  60. LEVOFLOXACIN [Concomitant]
     Active Substance: LEVOFLOXACIN
     Indication: Product used for unknown indication
     Dates: start: 20180305, end: 20180409
  61. RANITIDINE HYDROCHLORIDE [Concomitant]
     Active Substance: RANITIDINE HYDROCHLORIDE
     Indication: Product used for unknown indication
     Dates: start: 20180314, end: 20180426
  62. CALCIUM POLYCARBOPHIL [Concomitant]
     Active Substance: CALCIUM POLYCARBOPHIL
     Indication: Product used for unknown indication
     Dates: start: 20180710
  63. CHLORHEXIDINE GLUCONATE [Concomitant]
     Active Substance: CHLORHEXIDINE GLUCONATE
     Indication: Product used for unknown indication
     Dates: start: 20180314
  64. ALLOPURINOL [Concomitant]
     Active Substance: ALLOPURINOL
     Indication: Product used for unknown indication
     Dates: start: 20180307, end: 20180316
  65. URSODIOL [Concomitant]
     Active Substance: URSODIOL
     Indication: Product used for unknown indication
     Dates: start: 20180409, end: 20180418
  66. URSODIOL [Concomitant]
     Active Substance: URSODIOL
     Dates: start: 20180305, end: 20180328
  67. LORAZEPAM [Concomitant]
     Active Substance: LORAZEPAM
     Indication: Product used for unknown indication
     Dates: start: 20180322, end: 20180330
  68. HALOPERIDOL [Concomitant]
     Active Substance: HALOPERIDOL
     Indication: Product used for unknown indication
     Dates: start: 20180322, end: 20180329
  69. TEICOPLANIN [Concomitant]
     Active Substance: TEICOPLANIN
     Indication: Product used for unknown indication
     Dates: start: 20180322, end: 20180328
  70. MEGESTROL ACETATE [Concomitant]
     Active Substance: MEGESTROL ACETATE
     Indication: Product used for unknown indication
     Dates: start: 20180317, end: 20180417
  71. CARVEDILOL [Concomitant]
     Active Substance: CARVEDILOL
     Indication: Product used for unknown indication
     Dates: start: 20120924, end: 20180326
  72. METRONIDAZOLE [Concomitant]
     Active Substance: METRONIDAZOLE
     Indication: Product used for unknown indication
     Dates: start: 20180326, end: 20180331
  73. FINASTERIDE [Concomitant]
     Active Substance: FINASTERIDE
     Indication: Product used for unknown indication
     Dates: start: 20180409
  74. CODEINE PHOSPHATE [Concomitant]
     Active Substance: CODEINE PHOSPHATE
     Indication: Product used for unknown indication
     Dates: start: 20180423, end: 20180509
  75. ASPIRIN [Concomitant]
     Active Substance: ASPIRIN
     Indication: Product used for unknown indication
     Dates: start: 20120924
  76. EZETIMIBE [Concomitant]
     Active Substance: EZETIMIBE
     Indication: Product used for unknown indication
     Dates: start: 20160620
  77. SIMVASTATIN [Concomitant]
     Active Substance: SIMVASTATIN
     Indication: Product used for unknown indication
     Dates: start: 20160620
  78. LIMAPROST [Concomitant]
     Active Substance: LIMAPROST
     Indication: Product used for unknown indication
     Dates: start: 20180422, end: 20180422

REACTIONS (1)
  - Neutropenia [Recovered/Resolved]

NARRATIVE: CASE EVENT DATE: 20180802
